FAERS Safety Report 17793765 (Version 1)
Quarter: 2020Q2

REPORT INFORMATION
  Report Type: Spontaneous
  Country: US (occurrence: US)
  Receive Date: 20200515
  Receipt Date: 20200515
  Transmission Date: 20200714
  Serious: Yes (Death, Hospitalization, Other)
  Sender: FDA-Public Use
  Company Number: US-UPSHER-SMITH LABORATORIES, LLC-2020USL00265

PATIENT
  Sex: Male

DRUGS (3)
  1. AMIODARONE HYDROCHLORIDE. [Suspect]
     Active Substance: AMIODARONE HYDROCHLORIDE
     Indication: ATRIAL FIBRILLATION
     Dosage: UNK
     Route: 048
     Dates: start: 201310
  2. UNSPECIFIED MEDICATIONS [Suspect]
     Active Substance: UNSPECIFIED INGREDIENT
     Indication: INTERSTITIAL LUNG DISEASE
  3. UNSPECIFIED MEDICATIONS [Suspect]
     Active Substance: UNSPECIFIED INGREDIENT
     Indication: RENAL FAILURE

REACTIONS (10)
  - Asthenia [Unknown]
  - Interstitial lung disease [Fatal]
  - Unevaluable event [Unknown]
  - Nephropathy [Unknown]
  - Haemorrhage [Unknown]
  - Off label use [Unknown]
  - Respiratory distress [Unknown]
  - Pneumonia [Unknown]
  - Skin lesion [Unknown]
  - Renal failure [Unknown]

NARRATIVE: CASE EVENT DATE: 201310
